FAERS Safety Report 6717261-6 (Version None)
Quarter: 2010Q2

REPORT INFORMATION
  Report Type: 
  Country: None (occurrence: None)
  Receive Date: 20100510
  Receipt Date: 20100506
  Transmission Date: 20101027
  Serious: Yes (Death, Hospitalization)
  Sender: FDA-Public Use
  Company Number: PHHY2010US26126

PATIENT
  Sex: Male
  Weight: 90 kg

DRUGS (4)
  1. EXJADE [Suspect]
     Indication: ACUTE MYELOID LEUKAEMIA
     Dosage: 1750 MG/DAY
     Route: 048
     Dates: start: 20100217
  2. AMPHOTERICIN B [Concomitant]
  3. MEROPENEM [Concomitant]
  4. ACYCLOVIR [Concomitant]

REACTIONS (4)
  - ACUTE MYELOID LEUKAEMIA [None]
  - ASPERGILLOSIS [None]
  - ENTEROCOCCAL SEPSIS [None]
  - MALAISE [None]
